FAERS Safety Report 9580048 (Version 1)
Quarter: 2013Q3

REPORT INFORMATION
  Report Type: Spontaneous
  Country: US (occurrence: None)
  Receive Date: 20130930
  Receipt Date: 20130930
  Transmission Date: 20140515
  Serious: No
  Sender: FDA-Public Use
  Company Number: None

PATIENT
  Age: 47 Year
  Sex: Female
  Weight: 68.04 kg

DRUGS (1)
  1. LEVOFLOXACIN [Suspect]
     Indication: PYREXIA
     Route: 048
     Dates: start: 20131021, end: 20131023

REACTIONS (7)
  - Myalgia [None]
  - Arthralgia [None]
  - Pruritus [None]
  - Dry mouth [None]
  - Constipation [None]
  - Rash [None]
  - Dyspnoea [None]
